FAERS Safety Report 6870250-3 (Version None)
Quarter: 2010Q3

REPORT INFORMATION
  Report Type: 
  Country: None (occurrence: None)
  Receive Date: 20100723
  Receipt Date: 20100719
  Transmission Date: 20110219
  Serious: Yes (Hospitalization)
  Sender: FDA-Public Use
  Company Number: US-BIOGENIDEC-2010BI011942

PATIENT
  Age: 57 Year
  Sex: Female

DRUGS (5)
  1. TYSABRI [Suspect]
     Indication: MULTIPLE SCLEROSIS
     Route: 042
     Dates: start: 20070523
  2. TIZANIDINE HCL [Concomitant]
     Route: 048
  3. REMERON [Concomitant]
     Route: 048
  4. ARICEPT [Concomitant]
     Route: 048
  5. FOSAMAX [Concomitant]
     Route: 048

REACTIONS (4)
  - ASTHENIA [None]
  - INFECTION [None]
  - MEMORY IMPAIRMENT [None]
  - URINARY TRACT INFECTION [None]
